FAERS Safety Report 17483342 (Version 2)
Quarter: 2020Q1

REPORT INFORMATION
  Report Type: Spontaneous
  Country: CO (occurrence: CO)
  Receive Date: 20200302
  Receipt Date: 20200316
  Transmission Date: 20200409
  Serious: Yes (Hospitalization)
  Sender: FDA-Public Use
  Company Number: CO-ROCHE-2558612

PATIENT
  Age: 33 Year
  Sex: Female

DRUGS (1)
  1. XOLAIR [Suspect]
     Active Substance: OMALIZUMAB
     Indication: PRODUCT USED FOR UNKNOWN INDICATION
     Route: 065
     Dates: start: 201502

REACTIONS (19)
  - Diarrhoea [Unknown]
  - Drug hypersensitivity [Recovering/Resolving]
  - Drug ineffective [Unknown]
  - Anaphylactic shock [Unknown]
  - Pain [Unknown]
  - Burning sensation [Unknown]
  - Asthma [Unknown]
  - Limb discomfort [Unknown]
  - Dizziness [Unknown]
  - Erythema [Unknown]
  - Headache [Unknown]
  - Fear [Unknown]
  - Vomiting [Unknown]
  - Disease susceptibility [Unknown]
  - Confusional state [Unknown]
  - Bronchitis [Unknown]
  - Inflammation [Unknown]
  - Arthralgia [Unknown]
  - Urticaria [Unknown]
